FAERS Safety Report 14984270 (Version 1)
Quarter: 2018Q2

REPORT INFORMATION
  Report Type: Report from Study
  Country: FR (occurrence: FR)
  Receive Date: 20180607
  Receipt Date: 20180607
  Transmission Date: 20180711
  Serious: Yes (Hospitalization, Other)
  Sender: FDA-Public Use
  Company Number: FR-JAZZ-2017-FR-014295

PATIENT

DRUGS (1)
  1. DEFITELIO [Suspect]
     Active Substance: DEFIBROTIDE SODIUM
     Indication: PROPHYLAXIS
     Dosage: 27 MG/KG, QD
     Route: 042
     Dates: start: 20170723, end: 20170818

REACTIONS (5)
  - Graft versus host disease in gastrointestinal tract [Recovering/Resolving]
  - Graft versus host disease in skin [Recovered/Resolved]
  - Enterobacter test positive [Unknown]
  - Graft versus host disease in eye [Unknown]
  - Clostridium colitis [Recovering/Resolving]

NARRATIVE: CASE EVENT DATE: 20170908
